FAERS Safety Report 25489949 (Version 2)
Quarter: 2025Q2

REPORT INFORMATION
  Report Type: Spontaneous
  Country: US (occurrence: US)
  Receive Date: 20250627
  Receipt Date: 20250627
  Transmission Date: 20250716
  Serious: Yes (Hospitalization, Other)
  Sender: INTRABIO
  Company Number: US-IBO-202500140

PATIENT
  Age: 11 Year
  Sex: Female
  Weight: 33 kg

DRUGS (9)
  1. AQNEURSA [Suspect]
     Active Substance: ACETYLLEUCINE, L-
     Indication: Seizure
     Route: 065
     Dates: start: 20250603
  2. EPIDIOLEX [Concomitant]
     Active Substance: CANNABIDIOL
     Route: 065
  3. ONFI [Concomitant]
     Active Substance: CLOBAZAM
     Route: 065
  4. VIMPAT [Concomitant]
     Active Substance: LACOSAMIDE
     Route: 065
  5. MAGNESIUM [Concomitant]
     Active Substance: MAGNESIUM
     Route: 065
  6. ZINC SULFATE [Concomitant]
     Active Substance: ZINC SULFATE
     Route: 065
  7. MELATONIN [Concomitant]
     Active Substance: MELATONIN
     Route: 065
  8. CETIRIZINE [Concomitant]
     Active Substance: CETIRIZINE HYDROCHLORIDE
     Route: 065
  9. Taganil [Concomitant]
     Route: 065
     Dates: end: 20250603

REACTIONS (2)
  - Product preparation error [Unknown]
  - Seizure [Unknown]
